FAERS Safety Report 6097767-6 (Version None)
Quarter: 2009Q1

REPORT INFORMATION
  Report Type: 
  Country: None (occurrence: None)
  Receive Date: 20090223
  Receipt Date: 20080415
  Transmission Date: 20090719
  Serious: Yes (Other)
  Sender: FDA-Public Use
  Company Number: WAES 0304USA00378

PATIENT
  Age: 66 Year
  Sex: Male

DRUGS (4)
  1. ZOCOR [Suspect]
     Indication: BLOOD CHOLESTEROL INCREASED
     Dosage: 10 MG/DAILY/PO
     Route: 048
     Dates: start: 20010401, end: 20010701
  2. ATENOLOL [Concomitant]
  3. NIACIN [Concomitant]
  4. TERAZOSIN HYDROCHLORIDE [Concomitant]

REACTIONS (5)
  - CHEST DISCOMFORT [None]
  - DIZZINESS [None]
  - ERECTILE DYSFUNCTION [None]
  - MYOPATHY [None]
  - VISION BLURRED [None]
